FAERS Safety Report 14266440 (Version 1)
Quarter: 2017Q4

REPORT INFORMATION
  Report Type: Spontaneous
  Country: US (occurrence: US)
  Receive Date: 20171210
  Receipt Date: 20171210
  Transmission Date: 20180321
  Serious: No
  Sender: FDA-Public Use
  Company Number: US-AMGEN-USASP2017182023

PATIENT
  Sex: Female
  Weight: 255 kg

DRUGS (1)
  1. ENBREL [Suspect]
     Active Substance: ETANERCEPT
     Indication: PSORIASIS
     Dosage: 50 MG, 2 TIMES/WK 72 HRS APART
     Route: 058
     Dates: start: 20171020

REACTIONS (3)
  - Hyperhidrosis [Unknown]
  - Migraine [Unknown]
  - Chills [Unknown]

NARRATIVE: CASE EVENT DATE: 2017
